FAERS Safety Report 8440787-4 (Version None)
Quarter: 2012Q2

REPORT INFORMATION
  Report Type: 
  Country: None (occurrence: None)
  Receive Date: 20120615
  Receipt Date: 20120606
  Transmission Date: 20120825
  Serious: Yes (Hospitalization)
  Sender: FDA-Public Use
  Company Number: US-BAYER-2012-057703

PATIENT
  Age: 17 Year
  Sex: Female
  Weight: 76.2 kg

DRUGS (12)
  1. RANITIDINE [Concomitant]
  2. SULFAMETHOXAZOLE AND TRIMETHOPRIM [Concomitant]
  3. CYTOXAN [Concomitant]
     Dosage: EVERY 4 WEEKS
     Route: 042
  4. CYCLOPHOSPHAMIDE [Concomitant]
     Indication: CEREBRAL ARTERY EMBOLISM
  5. FLUOXETINE [Concomitant]
     Dosage: 20 MG, UNK
  6. ERGOCALCIFEROL [Concomitant]
  7. YAZ [Suspect]
     Indication: CONTRACEPTION
  8. DROSPIRENONE AND ETHINYL ESTRADIOL [Suspect]
  9. LUPRON - SLOW RELEASE [Concomitant]
     Indication: OVARIAN FAILURE
     Dosage: 3.75 MG, Q1MON
     Route: 030
  10. CALCIUM CARBONATE [Concomitant]
  11. SOLU-MEDROL [Concomitant]
     Indication: VIITH NERVE PARALYSIS
  12. EXCEDRIN (MIGRAINE) [Concomitant]
     Indication: MIGRAINE

REACTIONS (1)
  - CEREBRAL ARTERY EMBOLISM [None]
